FAERS Safety Report 5313888-7 (Version None)
Quarter: 2007Q2

REPORT INFORMATION
  Report Type: 
  Country: None (occurrence: None)
  Receive Date: 20070501
  Receipt Date: 20070427
  Transmission Date: 20071010
  Serious: Yes (Death)
  Sender: FDA-Public Use
  Company Number: DE-JNJFOC-20070405973

PATIENT
  Age: 79 Year
  Sex: Male

DRUGS (12)
  1. LEVOFLOXACIN [Suspect]
     Indication: PROPHYLAXIS
     Route: 048
  2. DOCETAXEL [Concomitant]
     Indication: NON-SMALL CELL LUNG CANCER
     Route: 065
  3. CARBOPLATIN [Concomitant]
     Indication: NON-SMALL CELL LUNG CANCER
     Route: 065
  4. FORTECORTIN [Concomitant]
     Route: 065
  5. ASPIRIN [Concomitant]
     Route: 065
  6. ZOCOR [Concomitant]
     Route: 065
  7. BUFLOMEDIL [Concomitant]
     Route: 065
  8. PANTOZOL [Concomitant]
     Route: 065
  9. SPASMEX [Concomitant]
     Route: 065
  10. VIGANTOLETTEN [Concomitant]
     Route: 065
  11. FOSAMAX [Concomitant]
     Route: 065
  12. SYMBIOCORT [Concomitant]
     Route: 055

REACTIONS (1)
  - BRAIN DEATH [None]
